FAERS Safety Report 8775871 (Version 1)
Quarter: 2012Q4

REPORT INFORMATION
  Report Type: 
  Country: DE (occurrence: DE)
  Receive Date: 20120910
  Receipt Date: 20120910
  Transmission Date: 20130627
  Serious: Yes (Hospitalization, Other)
  Sender: FDA-Public Use
  Company Number: DE-ROCHE-1009380

PATIENT

DRUGS (4)
  1. MABTHERA [Suspect]
     Indication: CHRONIC LEUKAEMIA
     Route: 042
  2. MABTHERA [Suspect]
     Route: 042
  3. FLUDARABINE PHOSPHATE [Suspect]
     Indication: CHRONIC LEUKAEMIA
     Route: 042
  4. EPIRUBICIN HYDROCHLORIDE [Suspect]
     Indication: CHRONIC LEUKAEMIA
     Route: 042

REACTIONS (4)
  - Hyperbilirubinaemia [Recovered/Resolved]
  - Cardiac failure congestive [Recovered/Resolved]
  - Neutropenia [Unknown]
  - Febrile neutropenia [Unknown]
